FAERS Safety Report 7658163-0 (Version None)
Quarter: 2011Q3

REPORT INFORMATION
  Report Type: 
  Country: None (occurrence: None)
  Receive Date: 20110805
  Receipt Date: 20110726
  Transmission Date: 20111222
  Serious: No
  Sender: FDA-Public Use
  Company Number: PHHY2011US68634

PATIENT
  Sex: Female
  Weight: 49.8 kg

DRUGS (7)
  1. MOBIC [Concomitant]
  2. MEDROL [Concomitant]
     Dosage: UNK
  3. CYMBALTA [Concomitant]
  4. SYNTHROID [Concomitant]
  5. BONIVA [Concomitant]
  6. M.V.I. [Concomitant]
     Dosage: UNK
  7. TASIGNA [Suspect]
     Indication: CHRONIC MYELOID LEUKAEMIA
     Dosage: 150 MG, BID
     Route: 048
     Dates: start: 20110501

REACTIONS (2)
  - ABDOMINAL DISTENSION [None]
  - WEIGHT INCREASED [None]
